FAERS Safety Report 10456023 (Version 2)
Quarter: 2014Q3

REPORT INFORMATION
  Report Type: Spontaneous
  Country: US (occurrence: None)
  Receive Date: 20140912
  Receipt Date: 20140930
  Transmission Date: 20150326
  Serious: Yes (Life-Threatening, Hospitalization)
  Sender: FDA-Public Use
  Company Number: US-H14001-14-00517

PATIENT
  Age: 56 Year
  Sex: Female

DRUGS (1)
  1. HEPARIN [Suspect]
     Active Substance: HEPARIN SODIUM
     Indication: PULMONARY EMBOLISM
     Dosage: INTRAVENOUS BOLUS?APPROXIMATELY 5 MINUTES
     Route: 040
     Dates: start: 2011, end: 2011

REACTIONS (7)
  - Cardio-respiratory arrest [None]
  - Heparin-induced thrombocytopenia [None]
  - Transient global amnesia [None]
  - Anaphylactoid reaction [None]
  - Condition aggravated [None]
  - Dyspnoea [None]
  - Flushing [None]

NARRATIVE: CASE EVENT DATE: 201111
